FAERS Safety Report 9466003 (Version 1)
Quarter: 2013Q3

REPORT INFORMATION
  Report Type: Spontaneous
  Country: US (occurrence: US)
  Receive Date: 20130820
  Receipt Date: 20130820
  Transmission Date: 20140515
  Serious: No
  Sender: FDA-Public Use
  Company Number: US-MYLANLABS-2012S1023240

PATIENT
  Age: 70 Year
  Sex: Female
  Weight: 54.43 kg

DRUGS (4)
  1. TEMAZEPAM CAPSULES [Suspect]
     Indication: INSOMNIA
     Route: 048
     Dates: start: 20121016, end: 20121021
  2. VITAMIN D [Concomitant]
     Indication: OSTEOPOROSIS
  3. SYNTHROID [Concomitant]
     Indication: HYPOTHYROIDISM
     Dates: start: 1988
  4. CALCIUM [Concomitant]
     Indication: OSTEOPOROSIS

REACTIONS (3)
  - Drug effect increased [Recovered/Resolved]
  - Gait disturbance [Recovered/Resolved]
  - Feeling abnormal [Recovered/Resolved]
